FAERS Safety Report 17486449 (Version 2)
Quarter: 2020Q1

REPORT INFORMATION
  Report Type: Spontaneous
  Country: GR (occurrence: GR)
  Receive Date: 20200303
  Receipt Date: 20200312
  Transmission Date: 20200409
  Serious: Yes (Hospitalization)
  Sender: FDA-Public Use
  Company Number: GR-BAXTER-2020BAX004880

PATIENT
  Sex: Female
  Weight: 60 kg

DRUGS (32)
  1. DOXIL [Suspect]
     Active Substance: DOXORUBICIN HYDROCHLORIDE
     Indication: NON-HODGKIN^S LYMPHOMA
     Dosage: 8 CYCLES
     Route: 042
     Dates: start: 20190513, end: 20191009
  2. RITUXIMAB. [Suspect]
     Active Substance: RITUXIMAB
     Dosage: 8 CYCLES
     Route: 042
     Dates: start: 20190513, end: 20191013
  3. ALDACTONE [Suspect]
     Active Substance: SPIRONOLACTONE
     Indication: NON-HODGKIN^S LYMPHOMA
     Dosage: 1 CYCLE
     Route: 042
     Dates: start: 20200105, end: 20200112
  4. NORVASC [Suspect]
     Active Substance: AMLODIPINE BESYLATE
     Route: 058
  5. VALTREX [Suspect]
     Active Substance: VALACYCLOVIR HYDROCHLORIDE
     Indication: NON-HODGKIN^S LYMPHOMA
     Route: 058
  6. CLORFENAMINA [CHLORPHENAMINE MALEATE] [Suspect]
     Active Substance: CHLORPHENIRAMINE MALEATE
     Dosage: 1 CYCLE
     Route: 048
     Dates: start: 20200110, end: 20200112
  7. MABTHERA [Suspect]
     Active Substance: RITUXIMAB
     Dosage: 1 CYCLE
     Route: 058
     Dates: start: 20190113, end: 20191210
  8. MEROPENEM. [Suspect]
     Active Substance: MEROPENEM
     Indication: NON-HODGKIN^S LYMPHOMA
     Dosage: 1 CYCLE, 2G X 3
     Route: 042
     Dates: start: 20200103, end: 20200113
  9. VALTREX [Suspect]
     Active Substance: VALACYCLOVIR HYDROCHLORIDE
     Route: 042
  10. ARACYTINE [Suspect]
     Active Substance: CYTARABINE
     Route: 058
  11. LASIX [Suspect]
     Active Substance: FUROSEMIDE
     Indication: NON-HODGKIN^S LYMPHOMA
     Dosage: 1 CYCLE
     Route: 042
     Dates: start: 20200110, end: 20200113
  12. RITUXIMAB. [Suspect]
     Active Substance: RITUXIMAB
     Indication: DIFFUSE LARGE B-CELL LYMPHOMA
     Dosage: 2 CYCLES
     Route: 042
     Dates: start: 20190113, end: 20191223
  13. CLORFENAMINA [CHLORPHENAMINE MALEATE] [Suspect]
     Active Substance: CHLORPHENIRAMINE MALEATE
     Indication: NON-HODGKIN^S LYMPHOMA
     Route: 042
  14. ESHAP [Suspect]
     Active Substance: CISPLATIN\CYTARABINE\ETOPOSIDE\METHYLPREDNISOLONE (ESHAP)
     Indication: DIFFUSE LARGE B-CELL LYMPHOMA
     Dosage: 2 CYCLES
     Route: 065
     Dates: start: 20191113, end: 20191223
  15. VEPESID [Suspect]
     Active Substance: ETOPOSIDE
     Indication: NON-HODGKIN^S LYMPHOMA
     Route: 058
  16. VEPESID [Suspect]
     Active Substance: ETOPOSIDE
     Dosage: 2 CYCLES
     Route: 042
     Dates: start: 20191119, end: 20200113
  17. ARACYTINE [Suspect]
     Active Substance: CYTARABINE
     Indication: NON-HODGKIN^S LYMPHOMA
     Dosage: 2 CYCLES
     Route: 042
     Dates: start: 20191123, end: 20200113
  18. ALDACTONE [Suspect]
     Active Substance: SPIRONOLACTONE
     Route: 042
  19. MABTHERA [Suspect]
     Active Substance: RITUXIMAB
     Indication: NON-HODGKIN^S LYMPHOMA
     Dosage: 9 CYCLES
     Route: 058
     Dates: start: 20190625, end: 20191009
  20. EPREX [Suspect]
     Active Substance: ERYTHROPOIETIN
     Indication: ANAEMIA OF MALIGNANT DISEASE
     Dosage: 1 CYCLE
     Route: 058
     Dates: start: 20190523, end: 20200124
  21. CANCIDAS [Suspect]
     Active Substance: CASPOFUNGIN ACETATE
     Indication: NON-HODGKIN^S LYMPHOMA
     Route: 042
     Dates: start: 20200105, end: 20200113
  22. VALTREX [Suspect]
     Active Substance: VALACYCLOVIR HYDROCHLORIDE
     Dosage: 1 CYCLE
     Route: 048
     Dates: start: 20200108, end: 20200113
  23. RITUXIMAB. [Suspect]
     Active Substance: RITUXIMAB
     Indication: DIFFUSE LARGE B-CELL LYMPHOMA
     Dosage: 3 CYCLES
     Route: 058
     Dates: start: 20190513, end: 20190625
  24. CUBICIN [Suspect]
     Active Substance: DAPTOMYCIN
     Indication: NON-HODGKIN^S LYMPHOMA
     Dosage: 1 CYCLE
     Route: 042
     Dates: start: 20200102, end: 20200113
  25. CHOP [Suspect]
     Active Substance: CYCLOPHOSPHAMIDE\DOXORUBICIN\PREDNISONE\VINCRISTINE
     Indication: DIFFUSE LARGE B-CELL LYMPHOMA
     Dosage: 8 CYCLES
     Route: 065
     Dates: start: 20190513, end: 20191013
  26. HUMAN ALBUMIN [Suspect]
     Active Substance: ALBUMIN HUMAN
     Indication: NON-HODGKIN^S LYMPHOMA
     Dosage: 1 CYCLE, 50 MG X 2
     Route: 042
     Dates: start: 20200110, end: 20200113
  27. FILGRASTIM [Suspect]
     Active Substance: FILGRASTIM
     Indication: LEUKOPENIA
     Route: 058
     Dates: start: 20190523, end: 20200117
  28. NORVASC [Suspect]
     Active Substance: AMLODIPINE BESYLATE
     Indication: HYPERTENSION
     Dosage: 1 CYCLE
     Route: 048
     Dates: start: 20190515, end: 20190516
  29. VALTREX [Suspect]
     Active Substance: VALACYCLOVIR HYDROCHLORIDE
     Route: 048
     Dates: start: 20190513, end: 20190516
  30. LOSEC [Suspect]
     Active Substance: OMEPRAZOLE
     Indication: NON-HODGKIN^S LYMPHOMA
     Dosage: 1 CYCLES TWICE
     Route: 042
     Dates: start: 20191223, end: 20200113
  31. CISPLATIN. [Suspect]
     Active Substance: CISPLATIN
     Indication: NON-HODGKIN^S LYMPHOMA
     Dosage: 2 CYCLES
     Route: 042
     Dates: start: 20190119, end: 20200113
  32. MABTHERA [Suspect]
     Active Substance: RITUXIMAB
     Dosage: 1 CYCLE
     Route: 042
     Dates: start: 20191222, end: 20200113

REACTIONS (2)
  - Diffuse large B-cell lymphoma refractory [Unknown]
  - Disease progression [Unknown]
